FAERS Safety Report 4855860-7 (Version None)
Quarter: 2005Q4

REPORT INFORMATION
  Report Type: 
  Country: None (occurrence: None)
  Receive Date: 20051215
  Receipt Date: 20051215
  Transmission Date: 20060501
  Serious: Yes (Other)
  Sender: FDA-Public Use
  Company Number: None

PATIENT
  Age: 42 Year
  Sex: Female
  Weight: 52.1637 kg

DRUGS (1)
  1. ALDARA [Suspect]
     Indication: SKIN CANCER
     Dosage: APPLY CREAM TO RIGHT EAR MON-FRI FOR 3 WEEK
     Route: 061
     Dates: start: 20051117, end: 20051212

REACTIONS (14)
  - ANOREXIA [None]
  - APPLICATION SITE IRRITATION [None]
  - APPLICATION SITE PRURITUS [None]
  - AURICULAR SWELLING [None]
  - BACK PAIN [None]
  - DYSGEUSIA [None]
  - FATIGUE [None]
  - HEADACHE [None]
  - HERPES SIMPLEX [None]
  - LYMPHADENOPATHY [None]
  - NAUSEA [None]
  - SENSATION OF PRESSURE [None]
  - SKIN BURNING SENSATION [None]
  - VISION BLURRED [None]
